FAERS Safety Report 23207581 (Version 1)
Quarter: 2023Q4

REPORT INFORMATION
  Report Type: Spontaneous
  Country: US (occurrence: US)
  Receive Date: 20231120
  Receipt Date: 20231120
  Transmission Date: 20240109
  Serious: No
  Sender: FDA-Public Use
  Company Number: US-BRACCO-2023US01956

PATIENT
  Age: 67 Year
  Sex: Male

DRUGS (3)
  1. LUMASON [Suspect]
     Active Substance: SULFUR HEXAFLUORIDE
     Indication: Diagnostic procedure
     Dosage: 5 ML, SINGLE
     Route: 042
     Dates: start: 20230411, end: 20230411
  2. LUMASON [Suspect]
     Active Substance: SULFUR HEXAFLUORIDE
     Indication: Diagnostic procedure
     Dosage: 5 ML, SINGLE
     Route: 042
     Dates: start: 20230411, end: 20230411
  3. LUMASON [Suspect]
     Active Substance: SULFUR HEXAFLUORIDE
     Indication: Diagnostic procedure
     Dosage: 5 ML, SINGLE
     Route: 042
     Dates: start: 20230411, end: 20230411

REACTIONS (7)
  - Abdominal pain upper [Unknown]
  - Tachycardia [Unknown]
  - Chest pain [Unknown]
  - Nausea [Unknown]
  - Hyperhidrosis [Unknown]
  - Back pain [Unknown]
  - Dyspnoea [Unknown]

NARRATIVE: CASE EVENT DATE: 20230411
